FAERS Safety Report 5404004-1 (Version None)
Quarter: 2007Q3

REPORT INFORMATION
  Report Type: 
  Country: None (occurrence: None)
  Receive Date: 20070802
  Receipt Date: 20070730
  Transmission Date: 20080115
  Serious: Yes (Other)
  Sender: FDA-Public Use
  Company Number: D0054072A

PATIENT
  Age: 56 Year
  Sex: Male

DRUGS (5)
  1. ARIXTRA [Suspect]
     Indication: THROMBOSIS PROPHYLAXIS
     Dosage: 2.5MG PER DAY
     Route: 058
     Dates: start: 20070718
  2. TRAMAL LONG [Concomitant]
     Indication: PAIN
     Dosage: 100MG TWICE PER DAY
     Route: 048
  3. IBUHEXAL [Concomitant]
     Indication: PAIN
     Dosage: 800MG TWICE PER DAY
     Route: 048
  4. PANTOPRAZOLE SODIUM [Concomitant]
     Dosage: 20MG PER DAY
     Route: 048
  5. NOVALGIN [Concomitant]
     Route: 048

REACTIONS (2)
  - PLATELET COUNT INCREASED [None]
  - THROMBOCYTHAEMIA [None]
